FAERS Safety Report 13351755 (Version 1)
Quarter: 2017Q1

REPORT INFORMATION
  Report Type: Spontaneous
  Country: US (occurrence: US)
  Receive Date: 20170320
  Receipt Date: 20170320
  Transmission Date: 20170429
  Serious: Yes (Other)
  Sender: FDA-Public Use
  Company Number: US-TEVA-750700USA

PATIENT
  Age: 50 Year
  Sex: Female

DRUGS (4)
  1. IFOSFAMIDE. [Suspect]
     Active Substance: IFOSFAMIDE
     Indication: LEIOMYOSARCOMA METASTATIC
     Route: 065
  2. IFOSFAMIDE. [Suspect]
     Active Substance: IFOSFAMIDE
     Route: 065
  3. MESNA. [Suspect]
     Active Substance: MESNA
     Indication: LEIOMYOSARCOMA METASTATIC
     Route: 065
  4. MESNA. [Suspect]
     Active Substance: MESNA
     Route: 065

REACTIONS (2)
  - Neutropenia [Unknown]
  - Neurotoxicity [Recovered/Resolved]
